FAERS Safety Report 7928160-6 (Version None)
Quarter: 2011Q4

REPORT INFORMATION
  Report Type: 
  Country: None (occurrence: None)
  Receive Date: 20111118
  Receipt Date: 20111107
  Transmission Date: 20120403
  Serious: Yes (Hospitalization)
  Sender: FDA-Public Use
  Company Number: JP-ELI_LILLY_AND_COMPANY-JP201111002056

PATIENT
  Age: 75 Year
  Sex: Female

DRUGS (3)
  1. GEMZAR [Suspect]
     Indication: NON-SMALL CELL LUNG CANCER
     Dosage: 1000 MG/M2, UNK
     Route: 042
  2. CISPLATIN [Concomitant]
     Dosage: 80 MG/M2, UNK
  3. AVASTIN [Concomitant]
     Dosage: 15 MG/KG, UNK

REACTIONS (1)
  - COLITIS ISCHAEMIC [None]
